FAERS Safety Report 4916771-1 (Version None)
Quarter: 2006Q1

REPORT INFORMATION
  Report Type: 
  Country: None (occurrence: None)
  Receive Date: 20060220
  Receipt Date: 20051206
  Transmission Date: 20060701
  Serious: Yes (Hospitalization)
  Sender: FDA-Public Use
  Company Number: JP-ROCHE-427853

PATIENT
  Age: 78 Year
  Sex: Female
  Weight: 46 kg

DRUGS (7)
  1. PEGASYS [Suspect]
     Route: 058
     Dates: start: 20050419, end: 20050607
  2. PEGASYS [Suspect]
     Route: 058
     Dates: start: 20050810, end: 20051012
  3. INTRON A [Suspect]
     Route: 058
     Dates: start: 20041227, end: 20050406
  4. EXCELASE [Concomitant]
     Route: 048
     Dates: start: 20021226
  5. VITANEURIN [Concomitant]
     Route: 048
     Dates: start: 20011126
  6. HOCHU-EKKI-TO [Concomitant]
     Route: 048
     Dates: start: 20011126
  7. MONILAC [Concomitant]
     Dosage: FORM REPORTED AS FINE GRANULE.
     Route: 048
     Dates: start: 20010509

REACTIONS (21)
  - ALANINE AMINOTRANSFERASE INCREASED [None]
  - ANORECTAL DISORDER [None]
  - AORTIC CALCIFICATION [None]
  - AORTIC DISSECTION [None]
  - ARTERIOSCLEROSIS [None]
  - ASPARTATE AMINOTRANSFERASE INCREASED [None]
  - ASTHENIA [None]
  - BACK PAIN [None]
  - BLADDER DISORDER [None]
  - CHEST PAIN [None]
  - HAEMATOCRIT DECREASED [None]
  - HAEMORRHAGIC DIATHESIS [None]
  - HYPOAESTHESIA [None]
  - HYPOALBUMINAEMIA [None]
  - PAIN IN EXTREMITY [None]
  - PARALYSIS [None]
  - PLATELET COUNT DECREASED [None]
  - PROTEIN TOTAL DECREASED [None]
  - SPINAL CORD INFARCTION [None]
  - THROMBOSIS [None]
  - WHITE BLOOD CELL COUNT DECREASED [None]
